FAERS Safety Report 6509863-7 (Version None)
Quarter: 2009Q4

REPORT INFORMATION
  Report Type: 
  Country: None (occurrence: None)
  Receive Date: 20091221
  Receipt Date: 20091221
  Transmission Date: 20100525
  Serious: Yes (Hospitalization)
  Sender: FDA-Public Use
  Company Number: None

PATIENT
  Sex: Female
  Weight: 68.4932 kg

DRUGS (2)
  1. LAMOTRIGINE [Suspect]
     Indication: BIPOLAR DISORDER
     Dosage: 100 MG QAM PO
     Route: 048
     Dates: start: 20091025, end: 20091029
  2. LAMOTRIGINE [Suspect]
     Indication: SCHIZOAFFECTIVE DISORDER
     Dosage: 100 MG QAM PO
     Route: 048
     Dates: start: 20091025, end: 20091029

REACTIONS (2)
  - RASH [None]
  - REFUSAL OF TREATMENT BY PATIENT [None]
